FAERS Safety Report 12496787 (Version 1)
Quarter: 2016Q2

REPORT INFORMATION
  Report Type: Spontaneous
  Country: FI (occurrence: FI)
  Receive Date: 20160624
  Receipt Date: 20160624
  Transmission Date: 20160815
  Serious: Yes (Hospitalization, Other)
  Sender: FDA-Public Use
  Company Number: FI-TAKEDA-2016TUS010653

PATIENT
  Age: 31 Year
  Sex: Female

DRUGS (20)
  1. CALCICHEW D3 FORTE/COLECALCIFEROL, VITAMIN D3 [Concomitant]
     Indication: NUTRITIONAL SUPPLEMENTATION
     Dosage: UNK UNK, QD
     Route: 065
     Dates: start: 2014
  2. BRICANYL TURBOHALER/TERBUTALIN [Concomitant]
     Indication: PRODUCT USED FOR UNKNOWN INDICATION
     Dosage: 0.25 MG, UNK
     Route: 065
  3. IMOCUR                             /00384302/ [Concomitant]
     Indication: PRODUCT USED FOR UNKNOWN INDICATION
     Dosage: 2 MG, UNK
     Route: 065
  4. SOMAC/PANTOPRAZOLE [Concomitant]
     Indication: DYSPEPSIA
     Dosage: 20 MG, BID
     Route: 048
     Dates: start: 20160209
  5. ZYPREXA VELOTAB/OLANZAPINE [Concomitant]
     Indication: MAJOR DEPRESSION
     Dosage: 5 MG, BID
     Route: 065
     Dates: start: 20160203, end: 20160410
  6. KETIPINOR [Concomitant]
     Active Substance: QUETIAPINE FUMARATE
     Indication: PRODUCT USED FOR UNKNOWN INDICATION
     Dosage: 25 MG, UNK
     Route: 065
  7. PRECOSA/SACCHAROMYCES BOULARDII [Concomitant]
     Indication: DIARRHOEA
     Dosage: 250 MG, BID
     Route: 065
     Dates: start: 20160322
  8. ABILIFY MAINTENA [Concomitant]
     Active Substance: ARIPIPRAZOLE
     Indication: MAJOR DEPRESSION
     Dosage: 15 MG, BID
     Route: 065
     Dates: start: 20160213
  9. VALDOXAN/AGOMELATINE [Concomitant]
     Indication: MAJOR DEPRESSION
     Dosage: 25 MG, QD
     Route: 065
     Dates: start: 20160219
  10. ASPIRIN CARDIO/ACETYLSALICYL ACID [Concomitant]
     Indication: THROMBOSIS PROPHYLAXIS
     Dosage: 100 MG, QD
     Route: 065
     Dates: start: 2010
  11. MELATONIN [Concomitant]
     Active Substance: MELATONIN
     Indication: INSOMNIA
     Dosage: 3 MG, BID
     Route: 065
     Dates: start: 20160212
  12. PRIMPERAN/METOCLOPRAMIDE [Concomitant]
     Indication: PRODUCT USED FOR UNKNOWN INDICATION
     Dosage: 10 MG, UNK
     Route: 065
  13. PANADOL FORTE/PARACETAMOL [Concomitant]
     Indication: PRODUCT USED FOR UNKNOWN INDICATION
     Dosage: 1 G, UNK
     Route: 065
  14. EMCONCOR CHF/BISOPROLOL [Concomitant]
     Indication: HYPERTENSION
     Dosage: 2.5 MG, QD
     Route: 065
     Dates: start: 2008
  15. VI-SIBLIN/ISPAGHULA [Concomitant]
     Indication: PRODUCT USED FOR UNKNOWN INDICATION
     Dosage: UNK UNK, QD
     Route: 065
  16. HYDROCORTISON                      /00028601/ [Concomitant]
     Active Substance: HYDROCORTISONE
     Indication: PRODUCT USED FOR UNKNOWN INDICATION
     Dosage: 10 MG/ML, UNK
     Route: 065
  17. SOMAC/PANTOPRAZOLE [Concomitant]
     Dosage: 20 MG, UNK
     Route: 065
  18. CALCICHEW D3 FORTE/COLECALCIFEROL, VITAMIN D3 [Concomitant]
     Dosage: 500 MG, QD
     Dates: start: 2014
  19. TRINTELLIX [Suspect]
     Active Substance: VORTIOXETINE HYDROBROMIDE
     Indication: MAJOR DEPRESSION
     Dosage: 10 MG, QD
     Route: 048
     Dates: start: 20160331, end: 20160402
  20. TEMESTA/LORAZEPAM [Concomitant]
     Indication: ANXIETY
     Dosage: 1 MG, Q4HR
     Route: 065
     Dates: start: 20160115, end: 20160410

REACTIONS (1)
  - Seizure [Recovered/Resolved]

NARRATIVE: CASE EVENT DATE: 20160402
